FAERS Safety Report 19162093 (Version 6)
Quarter: 2021Q2

REPORT INFORMATION
  Report Type: Spontaneous
  Country: CA (occurrence: CA)
  Receive Date: 20210421
  Receipt Date: 20210618
  Transmission Date: 20210717
  Serious: Yes (Other)
  Sender: FDA-Public Use
  Company Number: CA-CELLTRION INC.-2020CA029281

PATIENT

DRUGS (13)
  1. INFLECTRA [Suspect]
     Active Substance: INFLIXIMAB-DYYB
     Dosage: 10 MG/KG, AT 0, 1, 3 WEEKS, THEN EVERY 6 WEEKS
     Route: 042
     Dates: start: 20201013
  2. INFLECTRA [Suspect]
     Active Substance: INFLIXIMAB-DYYB
     Dosage: 10 MG/KG, AT 0, 1, 3 WEEKS, THEN EVERY 6 WEEKS
     Route: 042
     Dates: start: 20201026
  3. INFLECTRA [Suspect]
     Active Substance: INFLIXIMAB-DYYB
     Dosage: 10 MG/KG, AT 0, 1, 3 WEEKS, THEN EVERY 6 WEEKS
     Route: 042
     Dates: start: 20210301
  4. ALESSE 28 [Concomitant]
     Active Substance: ETHINYL ESTRADIOL\LEVONORGESTREL
     Dosage: UNK
     Route: 065
  5. INFLECTRA [Suspect]
     Active Substance: INFLIXIMAB-DYYB
     Dosage: 10 MG/KG, AT 0, 1, 3 WEEKS, THEN EVERY 6 WEEKS
     Route: 042
     Dates: start: 20201013
  6. INFLECTRA [Suspect]
     Active Substance: INFLIXIMAB-DYYB
     Dosage: 10 MG/KG, AT 0, 1, 3 WEEKS, THEN EVERY 6 WEEKS
     Route: 042
     Dates: start: 20201013
  7. INFLECTRA [Suspect]
     Active Substance: INFLIXIMAB-DYYB
     Dosage: 10 MG/KG, AT 0, 1, 3 WEEKS, THEN EVERY 6 WEEKS
     Route: 042
     Dates: start: 20201013
  8. INFLECTRA [Suspect]
     Active Substance: INFLIXIMAB-DYYB
     Dosage: 10 MG/KG, AT 0, 1, 3 WEEKS, THEN EVERY 6 WEEKS
     Route: 042
     Dates: start: 20210301
  9. INFLECTRA [Suspect]
     Active Substance: INFLIXIMAB-DYYB
     Dosage: 10 MG/KG, AT 0, 1, 3 WEEKS, THEN EVERY 6 WEEKS
     Route: 042
     Dates: start: 20210412
  10. PREDNISONE. [Concomitant]
     Active Substance: PREDNISONE
     Dosage: UNK
     Route: 065
     Dates: start: 20200916
  11. INFLECTRA [Suspect]
     Active Substance: INFLIXIMAB-DYYB
     Indication: COLITIS ULCERATIVE
     Dosage: 10 MG/KG, AT 0, 1, 3 WEEKS, THEN EVERY 6 WEEKS
     Route: 042
     Dates: start: 20201006
  12. INFLECTRA [Suspect]
     Active Substance: INFLIXIMAB-DYYB
     Dosage: 10 MG/KG, AT 0, 1, 3 WEEKS, THEN EVERY 6 WEEKS
     Route: 042
     Dates: start: 20201013
  13. INFLECTRA [Suspect]
     Active Substance: INFLIXIMAB-DYYB
     Dosage: 10 MG/KG, AT 0, 1, 3 WEEKS, THEN EVERY 6 WEEKS
     Route: 042
     Dates: start: 20210525

REACTIONS (4)
  - Malaise [Unknown]
  - Haematochezia [Not Recovered/Not Resolved]
  - Condition aggravated [Not Recovered/Not Resolved]
  - Off label use [Unknown]

NARRATIVE: CASE EVENT DATE: 20201006
